FAERS Safety Report 10181194 (Version 1)
Quarter: 2014Q2

REPORT INFORMATION
  Report Type: Spontaneous
  Country: US (occurrence: US)
  Receive Date: 20140519
  Receipt Date: 20140519
  Transmission Date: 20141212
  Serious: Yes (Death, Other)
  Sender: FDA-Public Use
  Company Number: US-MALLINCKRODT-T201402094

PATIENT
  Age: 29 Year
  Sex: Male

DRUGS (23)
  1. MD-GASTROVIEW [Suspect]
     Indication: COMPUTERISED TOMOGRAM
     Dosage: UNK
     Route: 048
     Dates: start: 20101113, end: 20101113
  2. ISOVUE [Concomitant]
     Indication: COMPUTERISED TOMOGRAM
     Dosage: 120 ML, UNK
     Route: 042
     Dates: start: 20101110, end: 20101110
  3. ISOVUE [Concomitant]
     Dosage: 100 ML, UNK
     Route: 042
     Dates: start: 20101113, end: 20101113
  4. MORPHINE [Concomitant]
     Indication: PAIN
     Dosage: 4 MG AT 2150 AND 2243
     Route: 042
     Dates: start: 20101109
  5. DILAUDID [Concomitant]
     Indication: PAIN
     Dosage: 1 MG, AT 2353
     Route: 042
     Dates: start: 20101109
  6. DILAUDID [Concomitant]
     Dosage: GIVEN FOR ^AGGRESSIVENESS^
     Dates: start: 20101111
  7. VERSED [Concomitant]
     Dosage: 2 MG AT 1737
     Route: 042
     Dates: start: 20101111
  8. VERSED [Concomitant]
     Dosage: 1 MG PRIOR TO ANOTHER DOSE GIVEN AT 1738
     Dates: start: 20101111
  9. VERSED [Concomitant]
     Dosage: UNK
  10. FENTANYL [Concomitant]
     Dosage: 100 MCG/ML AT 1737
     Route: 042
     Dates: start: 20101111
  11. FENTANYL [Concomitant]
     Dosage: 50 MCG/ML PRIOR TO ANOTHER DOSE GIVEN AT 1738
     Dates: start: 20101111
  12. LORAZEPAM [Concomitant]
     Indication: PRODUCT USED FOR UNKNOWN INDICATION
     Dosage: UNK
     Route: 042
  13. PARNATE [Concomitant]
     Indication: PRODUCT USED FOR UNKNOWN INDICATION
     Dosage: 50 MG, BID
     Route: 048
     Dates: start: 200709, end: 20101109
  14. NORVASC [Concomitant]
     Indication: PRODUCT USED FOR UNKNOWN INDICATION
     Dosage: 10 MG, QD
     Route: 048
     Dates: start: 200907, end: 20101108
  15. LISINOPRIL [Concomitant]
     Indication: PRODUCT USED FOR UNKNOWN INDICATION
     Dosage: 10 MG, QD
     Route: 048
     Dates: start: 200608, end: 20101108
  16. FAMOTIDINE [Concomitant]
     Indication: PRODUCT USED FOR UNKNOWN INDICATION
     Dosage: 20 MG, QD
     Route: 048
     Dates: start: 200601, end: 20101108
  17. TRICOR [Concomitant]
     Indication: PRODUCT USED FOR UNKNOWN INDICATION
     Dosage: 145 MG, QD
     Route: 048
     Dates: start: 200507, end: 20101108
  18. GABAPENTIN [Concomitant]
     Indication: PRODUCT USED FOR UNKNOWN INDICATION
     Dosage: 900 MG BID ON NON DIALYSIS DAYS
     Route: 048
     Dates: start: 200601, end: 20101109
  19. GABAPENTIN [Concomitant]
     Dosage: 1500 MG ON DIALYSIS DAYS
     Dates: start: 200601, end: 20101108
  20. SENSIPAR [Concomitant]
     Indication: PRODUCT USED FOR UNKNOWN INDICATION
     Dosage: 90 MG, QD
     Route: 048
     Dates: start: 200609, end: 20101108
  21. TRIAZOLAM [Concomitant]
     Indication: SLEEP DISORDER
     Dosage: 0.25 MG, PRN
     Route: 048
     Dates: start: 200410
  22. ASPIRIN [Concomitant]
     Indication: PRODUCT USED FOR UNKNOWN INDICATION
     Dosage: LOW DOSE
     Route: 048
     Dates: end: 20101108
  23. PHOSLO [Concomitant]
     Indication: PRODUCT USED FOR UNKNOWN INDICATION
     Dosage: UNK, WITH MEALS
     Route: 048

REACTIONS (4)
  - Aspiration bronchial [Unknown]
  - Multi-organ failure [Fatal]
  - Pneumonia [Unknown]
  - Decubitus ulcer [Not Recovered/Not Resolved]
